FAERS Safety Report 6359574-6 (Version None)
Quarter: 2009Q3

REPORT INFORMATION
  Report Type: 
  Country: None (occurrence: None)
  Receive Date: 20090917
  Receipt Date: 20090907
  Transmission Date: 20100115
  Serious: Yes (Other)
  Sender: FDA-Public Use
  Company Number: IL-JNJFOC-20090902454

PATIENT
  Age: 21 Year
  Sex: Male

DRUGS (2)
  1. INVEGA [Suspect]
     Indication: DECREASED APPETITE
     Route: 048
  2. EFFEXOR [Concomitant]
     Indication: DECREASED APPETITE

REACTIONS (6)
  - BLOOD ANTIDIURETIC HORMONE DECREASED [None]
  - BLOOD ANTIDIURETIC HORMONE INCREASED [None]
  - DIABETES INSIPIDUS [None]
  - FLUID RETENTION [None]
  - MICTURITION DISORDER [None]
  - OFF LABEL USE [None]
